FAERS Safety Report 6311910-2 (Version None)
Quarter: 2009Q3

REPORT INFORMATION
  Report Type: 
  Country: None (occurrence: None)
  Receive Date: 20090817
  Receipt Date: 20090810
  Transmission Date: 20100115
  Serious: Yes (Hospitalization)
  Sender: FDA-Public Use
  Company Number: DE-BRISTOL-MYERS SQUIBB COMPANY-14740187

PATIENT
  Sex: Male

DRUGS (2)
  1. ERBITUX [Suspect]
     Indication: HEAD AND NECK CANCER
     Route: 042
  2. RADIATION THERAPY [Concomitant]
     Indication: HEAD AND NECK CANCER
     Dosage: 1DF=60GY

REACTIONS (1)
  - THROMBOCYTOPENIA [None]
